FAERS Safety Report 14218731 (Version 3)
Quarter: 2018Q2

REPORT INFORMATION
  Report Type: Spontaneous
  Country: US (occurrence: US)
  Receive Date: 20171123
  Receipt Date: 20180403
  Transmission Date: 20180711
  Serious: Yes (Other)
  Sender: FDA-Public Use
  Company Number: US-ABBVIE-17P-163-2169716-00

PATIENT
  Sex: Female

DRUGS (1)
  1. LUPRON [Suspect]
     Active Substance: LEUPROLIDE ACETATE
     Indication: UTERINE LEIOMYOMA
     Route: 065

REACTIONS (22)
  - Pain [Unknown]
  - Pain in extremity [Unknown]
  - Back pain [Unknown]
  - Abdominal discomfort [Unknown]
  - Metrorrhagia [Unknown]
  - Abdominal distension [Unknown]
  - Constipation [Unknown]
  - Diarrhoea [Unknown]
  - Gastrointestinal disorder [Unknown]
  - Micturition urgency [Unknown]
  - Irritability [Unknown]
  - Abdominal pain [Unknown]
  - Premenstrual pain [Unknown]
  - Arthralgia [Unknown]
  - Emotional distress [Unknown]
  - Menstruation irregular [Unknown]
  - Mood swings [Unknown]
  - Flatulence [Unknown]
  - Depressed mood [Unknown]
  - Menorrhagia [Unknown]
  - Pelvic pain [Unknown]
  - Uterine leiomyoma [Unknown]
